FAERS Safety Report 4611442-3 (Version None)
Quarter: 2005Q1

REPORT INFORMATION
  Report Type: 
  Country: None (occurrence: None)
  Receive Date: 20050317
  Receipt Date: 20050307
  Transmission Date: 20050727
  Serious: Yes (Death)
  Sender: FDA-Public Use
  Company Number: US-JNJFOC-20050301788

PATIENT
  Sex: Female

DRUGS (5)
  1. INFLIXIMAB [Suspect]
     Indication: RHEUMATOID ARTHRITIS
     Route: 042
  2. PREDNISONE [Concomitant]
  3. CALCIUM WITH VITAMIN D [Concomitant]
  4. CALCIUM WITH VITAMIN D [Concomitant]
  5. CALCIUM WITH VITAMIN D [Concomitant]

REACTIONS (1)
  - ACUTE MYELOID LEUKAEMIA [None]
